FAERS Safety Report 25435357 (Version 3)
Quarter: 2025Q3

REPORT INFORMATION
  Report Type: Spontaneous
  Country: JP (occurrence: JP)
  Receive Date: 20250613
  Receipt Date: 20250901
  Transmission Date: 20251020
  Serious: Yes (Life-Threatening, Hospitalization, Other)
  Sender: ALEXION PHARMACEUTICALS
  Company Number: JP-ASTRAZENECA-250057763_013020_P_1

PATIENT
  Age: 70 Year
  Sex: Male

DRUGS (1)
  1. OSIMERTINIB [Suspect]
     Active Substance: OSIMERTINIB
     Indication: Non-small cell lung cancer
     Dosage: 80 MILLIGRAM, QD

REACTIONS (11)
  - Pulmonary alveolar haemorrhage [Recovering/Resolving]
  - Malignant neoplasm progression [Unknown]
  - Immune-mediated gastritis [Unknown]
  - Metastases to bone [Unknown]
  - Pyrexia [Unknown]
  - Dyspnoea [Unknown]
  - Lung opacity [Unknown]
  - Lung infiltration [Unknown]
  - Oxygen saturation decreased [Unknown]
  - Respiratory disorder [Unknown]
  - Mass [Unknown]
